FAERS Safety Report 12652548 (Version 4)
Quarter: 2016Q3

REPORT INFORMATION
  Report Type: Other
  Country: CZ (occurrence: CZ)
  Receive Date: 20160815
  Receipt Date: 20160921
  Transmission Date: 20161109
  Serious: Yes (Life-Threatening, Hospitalization, Other)
  Sender: FDA-Public Use
  Company Number: CZ-SYMPLMED PHARMACEUTICALS-2016SYMPLMED000293

PATIENT

DRUGS (5)
  1. PRESTANCE [Suspect]
     Active Substance: AMLODIPINE BESYLATE\PERINDOPRIL ARGININE
     Indication: HYPERTENSION
     Dosage: 1 (5MG/5MG) TABLET, QD
     Route: 048
  2. ULTRACOD [Concomitant]
     Indication: PRODUCT USED FOR UNKNOWN INDICATION
     Dosage: UNK
  3. TRIPLIXAM [Suspect]
     Active Substance: AMLODIPINE BESYLATE\INDAPAMIDE\PERINDOPRIL ARGININE
     Indication: HYPERTENSION
     Dosage: 1 (10MG/2.5MG/10MG) TABLET, QD
     Route: 048
     Dates: start: 20160722, end: 20160727
  4. GABAGAMMA [Concomitant]
     Indication: NEURALGIA
     Dosage: 2 (300MG) CAPSULES, BID
     Route: 048
  5. HELICID                            /00661202/ [Concomitant]
     Indication: PRODUCT USED FOR UNKNOWN INDICATION
     Dosage: UNK

REACTIONS (9)
  - Headache [Recovering/Resolving]
  - Hypokalaemia [Recovered/Resolved]
  - Hyponatraemia [Recovered/Resolved]
  - Blood pressure increased [Recovered/Resolved]
  - Asthenia [Unknown]
  - Hypochloraemia [Recovered/Resolved]
  - Pain in extremity [Recovering/Resolving]
  - Back pain [Recovering/Resolving]
  - Hypoosmolar state [Recovered/Resolved]

NARRATIVE: CASE EVENT DATE: 20160727
